FAERS Safety Report 5201407-5 (Version None)
Quarter: 2007Q1

REPORT INFORMATION
  Report Type: 
  Country: None (occurrence: None)
  Receive Date: 20070104
  Receipt Date: 20060309
  Transmission Date: 20070707
  Serious: Yes (Life-Threatening)
  Sender: FDA-Public Use
  Company Number: 2006BH005839

PATIENT
  Age: 51 Year
  Sex: Female

DRUGS (7)
  1. FLAGYL I.V. [Suspect]
     Indication: ANTIBIOTIC PROPHYLAXIS
     Dosage: 1.5 GM; IV
     Route: 042
     Dates: start: 20060223, end: 20060223
  2. NOREPINEPHRINE BITARTRATE [Suspect]
     Indication: INDUCTION OF ANAESTHESIA
     Dosage: 0.2 MG; IV
     Route: 042
     Dates: start: 20060223, end: 20060223
  3. PENTOTHAL [Suspect]
     Indication: INDUCTION OF ANAESTHESIA
     Dosage: 425 MG; IV
     Route: 042
     Dates: start: 20060223, end: 20060223
  4. NIMBEX [Suspect]
     Indication: INDUCTION OF ANAESTHESIA
     Dosage: 10 MG; IV
     Route: 042
     Dates: start: 20060223, end: 20060223
  5. DEXAMETHASONE [Concomitant]
  6. DROPERIDOL [Concomitant]
  7. EFEDRIN [Concomitant]

REACTIONS (3)
  - BLOOD PRESSURE DECREASED [None]
  - INFUSION RELATED REACTION [None]
  - OXYGEN SATURATION ABNORMAL [None]
